FAERS Safety Report 5211685-4 (Version None)
Quarter: 2007Q1

REPORT INFORMATION
  Report Type: 
  Country: None (occurrence: None)
  Receive Date: 20070117
  Receipt Date: 20070117
  Transmission Date: 20070707
  Serious: Yes (Life-Threatening)
  Sender: FDA-Public Use
  Company Number: None

PATIENT
  Sex: Female
  Weight: 46 kg

DRUGS (1)
  1. ADDERALL 10 [Suspect]
     Indication: ATTENTION DEFICIT/HYPERACTIVITY DISORDER
     Dosage: 10 MG EVERY MORNING PO
     Route: 048
     Dates: start: 20060101, end: 20061231

REACTIONS (3)
  - CEREBRAL HAEMATOMA [None]
  - CONVULSION [None]
  - MENTAL DISORDER [None]
